FAERS Safety Report 8794457 (Version 1)
Quarter: 2012Q4

REPORT INFORMATION
  Report Type: 
  Country: US (occurrence: US)
  Receive Date: 20120917
  Receipt Date: 20120917
  Transmission Date: 20130627
  Serious: No
  Sender: FDA-Public Use
  Company Number: US-VERTEX PHARMACEUTICAL INC.-AE-2012-009318

PATIENT
  Age: 63 Year
  Sex: Male
  Weight: 84.55 kg

DRUGS (11)
  1. INCIVEK [Suspect]
     Indication: HEPATITIS C
     Route: 048
     Dates: start: 20120616
  2. RIBAVIRIN [Concomitant]
     Indication: HEPATITIS C
     Dates: start: 20120616
  3. PEGASYS [Concomitant]
     Indication: HEPATITIS C
     Route: 058
     Dates: start: 20120616
  4. METFORMIN [Concomitant]
  5. QUINAPRIL [Concomitant]
  6. FINASTERIDE [Concomitant]
  7. LEVEMIR [Concomitant]
  8. LOVAZA [Concomitant]
  9. CLONIDINE [Concomitant]
  10. HYDROCHLOROT [Concomitant]
  11. NEUPOGEN [Concomitant]
     Indication: WHITE BLOOD CELL COUNT DECREASED

REACTIONS (5)
  - Dizziness [Not Recovered/Not Resolved]
  - Pyrexia [Not Recovered/Not Resolved]
  - Anaemia [Unknown]
  - Nausea [Not Recovered/Not Resolved]
  - Dysgeusia [Not Recovered/Not Resolved]
